FAERS Safety Report 7235031-X (Version None)
Quarter: 2011Q1

REPORT INFORMATION
  Report Type: 
  Country: None (occurrence: None)
  Receive Date: 20110120
  Receipt Date: 20110114
  Transmission Date: 20110831
  Serious: Yes (Death, Life-Threatening, Hospitalization)
  Sender: FDA-Public Use
  Company Number: DE-GENZYME-CAMP-1001092

PATIENT
  Sex: Male
  Weight: 70.8 kg

DRUGS (20)
  1. PEGFILGRASTIM [Suspect]
     Dosage: 6 MG,  ONCE EVERY 14 DAYS
     Route: 058
  2. PEGFILGRASTIM [Suspect]
     Dosage: 6 MG,  ONCE EVERY 14 DAYS
     Route: 058
     Dates: end: 20101118
  3. DEXAMETHASONE [Suspect]
     Indication: CHRONIC LYMPHOCYTIC LEUKAEMIA
     Dosage: 40 MG, 4X EVERY 14 DAYS, (TOTAL 20 ADMINISTRATIONS)
     Route: 048
     Dates: start: 20100802, end: 20100930
  4. PEGFILGRASTIM [Suspect]
     Dosage: 6 MG,  ONCE EVERY 14 DAYS
     Route: 058
  5. BELOC-ZOC COMP [Concomitant]
     Indication: HYPERTENSION
     Dosage: 475 MG, UNK
     Route: 065
     Dates: start: 20100806
  6. HCT [Concomitant]
     Indication: PRODUCT USED FOR UNKNOWN INDICATION
     Dosage: 25 MG, UNK
     Route: 065
  7. TOREM [Concomitant]
     Indication: PRODUCT USED FOR UNKNOWN INDICATION
     Dosage: 10 MG, UNK
     Route: 065
  8. COTRIM FORTE EU RHO [Concomitant]
     Indication: PROPHYLAXIS
     Dosage: 900 MG, UNK
     Route: 065
     Dates: start: 20100806
  9. MAGNESIUM VERLA [Concomitant]
     Indication: PRODUCT USED FOR UNKNOWN INDICATION
     Dosage: UNK
     Route: 065
  10. PEGFILGRASTIM [Suspect]
     Dosage: 6 MG,  ONCE EVERY 14 DAYS
     Route: 058
  11. PANTOZOL [Concomitant]
     Indication: PRODUCT USED FOR UNKNOWN INDICATION
     Dosage: 40 MG, UNK
     Route: 065
  12. CAMPATH [Suspect]
     Indication: CHRONIC LYMPHOCYTIC LEUKAEMIA
     Dosage: 30 MG, 3X/WEEK (27 ADMINISTRATIONS TOTAL)
     Route: 058
     Dates: start: 20100802, end: 20101001
  13. PEGFILGRASTIM [Suspect]
     Indication: NEUTROPENIA
     Dosage: 6 MG, ONCE EVERY 14 DAYS, (1 ADMINISTRATIONS)
     Route: 058
     Dates: start: 20100802, end: 20100927
  14. PEGFILGRASTIM [Suspect]
     Dosage: 6 MG,  ONCE EVERY 14 DAYS
     Route: 058
  15. PEGFILGRASTIM [Suspect]
     Dosage: 6 MG,  ONCE EVERY 14 DAYS
     Route: 058
     Dates: end: 20100927
  16. PEGFILGRASTIM [Suspect]
     Dosage: 6 MG,  ONCE EVERY 14 DAYS
     Route: 058
  17. METFORMIN [Concomitant]
     Indication: DIABETES MELLITUS
     Dosage: 500 MG, UNK
     Route: 065
     Dates: start: 20100811
  18. PEGFILGRASTIM [Suspect]
     Dosage: 6 MG,  ONCE EVERY 14 DAYS
     Route: 058
  19. KIOVIG [Concomitant]
     Indication: PRODUCT USED FOR UNKNOWN INDICATION
     Dosage: 20 MG, UNK
     Route: 042
  20. DELIX [Concomitant]
     Indication: PRODUCT USED FOR UNKNOWN INDICATION
     Dosage: 2.5 MG, UNK
     Route: 065

REACTIONS (6)
  - HAEMOTHORAX [None]
  - DYSPNOEA [None]
  - BRONCHOPULMONARY ASPERGILLOSIS [None]
  - HAEMORRHAGE [None]
  - LIP INJURY [None]
  - FALL [None]
